FAERS Safety Report 21774985 (Version 8)
Quarter: 2025Q1

REPORT INFORMATION
  Report Type: Spontaneous
  Country: DE (occurrence: DE)
  Receive Date: 20221225
  Receipt Date: 20250315
  Transmission Date: 20250409
  Serious: Yes (Life-Threatening, Hospitalization, Other)
  Sender: AUROBINDO
  Company Number: DE-ROCHE-3228427

PATIENT
  Age: 25 Year
  Sex: Female
  Weight: 58 kg

DRUGS (30)
  1. IBUPROFEN [Suspect]
     Active Substance: IBUPROFEN
     Indication: Product used for unknown indication
     Route: 065
  2. OCRELIZUMAB [Suspect]
     Active Substance: OCRELIZUMAB
     Indication: Relapsing multiple sclerosis
     Route: 042
     Dates: start: 20190514, end: 20190528
  3. OCRELIZUMAB [Suspect]
     Active Substance: OCRELIZUMAB
     Route: 042
     Dates: start: 20191202
  4. CHOLECALCIFEROL [Concomitant]
     Active Substance: CHOLECALCIFEROL
     Indication: Vitamin D deficiency
     Route: 065
     Dates: start: 20200715
  5. PFIZER-BIONTECH COVID-19 VACCINE [Concomitant]
     Active Substance: TOZINAMERAN
     Indication: COVID-19 prophylaxis
     Route: 030
     Dates: start: 20211201, end: 20211201
  6. PFIZER-BIONTECH COVID-19 VACCINE [Concomitant]
     Active Substance: TOZINAMERAN
     Route: 030
     Dates: start: 20210519, end: 20210519
  7. PFIZER-BIONTECH COVID-19 VACCINE [Concomitant]
     Active Substance: TOZINAMERAN
     Route: 030
     Dates: start: 20210408, end: 20210408
  8. PREDNISOLONE [Concomitant]
     Active Substance: PREDNISOLONE
     Indication: Otitis media
     Dosage: 10 MILLIGRAM, ONCE A DAY
     Route: 048
     Dates: start: 20240130, end: 20240208
  9. PREDNISOLONE [Concomitant]
     Active Substance: PREDNISOLONE
     Indication: Nasal congestion
     Dosage: 20 MILLIGRAM, ONCE A DAY
     Route: 048
     Dates: start: 20240820, end: 20240826
  10. PREDNISOLONE [Concomitant]
     Active Substance: PREDNISOLONE
     Indication: Chronic sinusitis
     Dosage: 10 MILLIGRAM, ONCE A DAY
     Route: 048
     Dates: start: 20240827, end: 20240829
  11. CLINDAMYCIN HYDROCHLORIDE [Concomitant]
     Active Substance: CLINDAMYCIN HYDROCHLORIDE
     Indication: Bacterial infection
     Dosage: 600 MILLIGRAM, TWO TIMES A DAY
     Route: 048
     Dates: start: 20240321, end: 20240326
  12. MOMETASONE FUROATE [Concomitant]
     Active Substance: MOMETASONE FUROATE
     Indication: Product used for unknown indication
     Dosage: UNK, ONCE A DAY
     Route: 045
     Dates: start: 20240607
  13. HYALURONATE SODIUM [Concomitant]
     Active Substance: HYALURONATE SODIUM
     Indication: Chronic sinusitis
     Route: 045
     Dates: start: 202309, end: 202310
  14. Omni biotic ab 10 [Concomitant]
     Indication: Prophylaxis
     Route: 048
     Dates: start: 20240321, end: 20240326
  15. Rhinivict Nasal [Concomitant]
     Indication: Bacterial infection
     Route: 045
     Dates: start: 20240321, end: 20240326
  16. OFLOXACIN [Concomitant]
     Active Substance: OFLOXACIN
     Indication: Conjunctivitis
     Route: 065
     Dates: start: 20240405, end: 20240412
  17. XYLOMETAZOLINE HYDROCHLORIDE [Concomitant]
     Active Substance: XYLOMETAZOLINE HYDROCHLORIDE
     Indication: Chronic sinusitis
     Route: 045
     Dates: start: 202309, end: 202310
  18. XYLOMETAZOLINE HYDROCHLORIDE [Concomitant]
     Active Substance: XYLOMETAZOLINE HYDROCHLORIDE
     Route: 045
     Dates: start: 20240513, end: 20240520
  19. DOXYCYCLINE [Concomitant]
     Active Substance: DOXYCYCLINE
     Indication: Chronic sinusitis
     Dosage: 200 MILLIGRAM, TWO TIMES A DAY
     Route: 048
     Dates: start: 20231012, end: 20231021
  20. HERBALS [Concomitant]
     Active Substance: HERBALS
     Indication: Chronic sinusitis
     Route: 042
     Dates: start: 202309, end: 202309
  21. HERBALS [Concomitant]
     Active Substance: HERBALS
     Route: 048
     Dates: start: 20230515, end: 20230522
  22. CIPROFLOXACIN\FLUOCINOLONE ACETONIDE [Concomitant]
     Active Substance: CIPROFLOXACIN\FLUOCINOLONE ACETONIDE
     Indication: Otitis media
     Dosage: UNK, ONCE A DAY
     Route: 065
     Dates: start: 20240806, end: 20240809
  23. DYMISTA [Concomitant]
     Active Substance: AZELASTINE HYDROCHLORIDE\FLUTICASONE PROPIONATE
     Indication: Chronic sinusitis
     Route: 045
     Dates: start: 20240130
  24. Amoxi clavulan puren [Concomitant]
     Indication: Bacterial infection
     Route: 048
     Dates: start: 20240306, end: 20240312
  25. Amoxi clavulan puren [Concomitant]
     Indication: C-reactive protein
  26. DIETARY SUPPLEMENT\HERBALS [Concomitant]
     Active Substance: DIETARY SUPPLEMENT\HERBALS
     Indication: Headache
     Route: 065
     Dates: start: 20240513, end: 20240520
  27. DIETARY SUPPLEMENT\HERBALS [Concomitant]
     Active Substance: DIETARY SUPPLEMENT\HERBALS
     Indication: Ear pain
  28. DIETARY SUPPLEMENT\HERBALS [Concomitant]
     Active Substance: DIETARY SUPPLEMENT\HERBALS
     Indication: Chronic sinusitis
     Route: 048
     Dates: start: 20231230, end: 20240108
  29. DESLORATADINE [Concomitant]
     Active Substance: DESLORATADINE
     Indication: Chronic sinusitis
     Route: 048
     Dates: start: 20231012, end: 20231123
  30. PANTOPRAZOLE SODIUM [Concomitant]
     Active Substance: PANTOPRAZOLE SODIUM
     Indication: Chronic sinusitis
     Route: 048
     Dates: start: 20240820, end: 20240829

REACTIONS (5)
  - Agranulocytosis [Recovered/Resolved]
  - Neutropenia [Recovered/Resolved]
  - Urinary tract infection [Recovered/Resolved]
  - Cystitis noninfective [Recovered/Resolved]
  - Chronic sinusitis [Not Recovered/Not Resolved]

NARRATIVE: CASE EVENT DATE: 20221101
